FAERS Safety Report 16532168 (Version 1)
Quarter: 2019Q3

REPORT INFORMATION
  Report Type: Report from Study
  Country: US (occurrence: US)
  Receive Date: 20190704
  Receipt Date: 20190704
  Transmission Date: 20191004
  Serious: Yes (Other)
  Sender: FDA-Public Use
  Company Number: US-MYLANLABS-2018M1058438

PATIENT
  Age: 19 Year
  Sex: Male
  Weight: 73 kg

DRUGS (2)
  1. IBUPROFEN                          /00109205/ [Concomitant]
     Active Substance: IBUPROFEN
     Indication: PRODUCT USED FOR UNKNOWN INDICATION
     Dosage: UNK
  2. GLATIRAMER ACETATE INJECTION [Suspect]
     Active Substance: GLATIRAMER ACETATE
     Indication: RELAPSING-REMITTING MULTIPLE SCLEROSIS
     Dosage: 40 MG, 3XW
     Route: 058
     Dates: start: 20180716

REACTIONS (25)
  - Syncope [Unknown]
  - Dizziness [Recovered/Resolved]
  - Oropharyngeal pain [Unknown]
  - Clumsiness [Unknown]
  - Headache [Unknown]
  - Injection site pruritus [Recovering/Resolving]
  - Drug ineffective [Unknown]
  - Chest discomfort [Recovered/Resolved]
  - Gait disturbance [Unknown]
  - Multiple sclerosis relapse [Unknown]
  - Abdominal distension [Recovered/Resolved]
  - Tinnitus [Recovered/Resolved]
  - Feeling abnormal [Recovered/Resolved]
  - Muscle fatigue [Unknown]
  - Speech disorder [Unknown]
  - Product dose omission [Unknown]
  - Paranasal sinus discomfort [Unknown]
  - Ocular discomfort [Unknown]
  - Flushing [Unknown]
  - Weight decreased [Unknown]
  - Injection site erythema [Recovering/Resolving]
  - Ear discomfort [Unknown]
  - Nausea [Recovered/Resolved]
  - Pyrexia [Unknown]
  - Confusional state [Unknown]

NARRATIVE: CASE EVENT DATE: 20160718
